FAERS Safety Report 10089084 (Version 1)
Quarter: 2014Q2

REPORT INFORMATION
  Report Type: Spontaneous
  Country: US (occurrence: None)
  Receive Date: 20140418
  Receipt Date: 20140418
  Transmission Date: 20141212
  Serious: Yes (Disabling, Other)
  Sender: FDA-Public Use
  Company Number: None

PATIENT
  Age: 60 Year
  Sex: Female
  Weight: 53.52 kg

DRUGS (2)
  1. BUPROPION HCL [Suspect]
     Indication: DEPRESSION
     Dosage: 1 TABLET  TWICE DAILY TAKEN BY MOUTH
     Route: 048
     Dates: start: 20140303, end: 20140331
  2. BUPROPION HCL [Suspect]
     Dosage: 1 TABLET  TWICE DAILY TAKEN BY MOUTH
     Route: 048
     Dates: start: 20140303, end: 20140331

REACTIONS (4)
  - Crying [None]
  - Activities of daily living impaired [None]
  - Depression [None]
  - Product substitution issue [None]
